FAERS Safety Report 6843756-0 (Version None)
Quarter: 2010Q3

REPORT INFORMATION
  Report Type: 
  Country: None (occurrence: None)
  Receive Date: 20100715
  Receipt Date: 20100706
  Transmission Date: 20110219
  Serious: Yes (Other)
  Sender: FDA-Public Use
  Company Number: US-ASTRAZENECA-2010SE23594

PATIENT
  Age: 71 Year
  Sex: Male
  Weight: 113.4 kg

DRUGS (4)
  1. ZOLADEX [Suspect]
     Indication: PROSTATE CANCER
     Route: 058
     Dates: start: 20091118
  2. ZOLADEX [Suspect]
     Route: 058
     Dates: start: 20091216
  3. SESTAMIBI [Concomitant]
     Dosage: STARTING DOSE 240 MG, 40 MG/ML, 2X3 ML
     Route: 058
  4. SESTAMIBI [Concomitant]
     Dosage: MAINTENANCE THERAPY 480 MG, 60 MG/ML, 2X4 ML 3 MONTH DEPOT
     Route: 058

REACTIONS (1)
  - MYOCARDIAL ISCHAEMIA [None]
